FAERS Safety Report 6014558-2 (Version None)
Quarter: 2008Q4

REPORT INFORMATION
  Report Type: 
  Country: None (occurrence: None)
  Receive Date: 20081219
  Receipt Date: 20080820
  Transmission Date: 20090506
  Serious: Yes (Hospitalization)
  Sender: FDA-Public Use
  Company Number: A0743527A

PATIENT
  Age: 87 Year
  Sex: Male

DRUGS (2)
  1. AVODART [Suspect]
     Dosage: .5MG PER DAY
     Route: 048
     Dates: start: 20080812
  2. FLOMAX [Suspect]
     Indication: DRUG USE FOR UNKNOWN INDICATION
     Dosage: .4MG PER DAY
     Dates: start: 20080701

REACTIONS (1)
  - DIZZINESS [None]
